FAERS Safety Report 9170253 (Version 1)
Quarter: 2013Q1

REPORT INFORMATION
  Report Type: Spontaneous
  Country: US (occurrence: US)
  Receive Date: 20130319
  Receipt Date: 20130319
  Transmission Date: 20140127
  Serious: Yes (Hospitalization)
  Sender: FDA-Public Use
  Company Number: US-BAYER-2013-030245

PATIENT
  Age: 29 Year
  Sex: Female
  Weight: 95.24 kg

DRUGS (1)
  1. YASMIN [Suspect]

REACTIONS (1)
  - Pulmonary embolism [None]
